FAERS Safety Report 19045723 (Version 2)
Quarter: 2021Q3

REPORT INFORMATION
  Report Type: Spontaneous
  Country: JP (occurrence: JP)
  Receive Date: 20210322
  Receipt Date: 20210813
  Transmission Date: 20211014
  Serious: Yes (Death, Other)
  Sender: FDA-Public Use
  Company Number: JP-JAZZ-2020-JP-015976

PATIENT
  Age: 48 Year
  Sex: Male
  Weight: 73.2 kg

DRUGS (2)
  1. DEFITELIO [Suspect]
     Active Substance: DEFIBROTIDE SODIUM
     Dosage: 25 MILLIGRAM/KILOGRAM, QD
     Route: 042
     Dates: start: 20201126, end: 20201206
  2. DEFITELIO [Suspect]
     Active Substance: DEFIBROTIDE SODIUM
     Indication: VENOOCCLUSIVE LIVER DISEASE
     Dosage: 25 MILLIGRAM/KILOGRAM, QD
     Route: 042
     Dates: start: 20201122, end: 20201123

REACTIONS (10)
  - Multiple organ dysfunction syndrome [Unknown]
  - Encephalitis viral [Unknown]
  - Candida sepsis [Unknown]
  - Mucosal disorder [Unknown]
  - Myelosuppression [Unknown]
  - Graft versus host disease [Unknown]
  - Off label use [Unknown]
  - Hypotension [Fatal]
  - Gastrointestinal haemorrhage [Fatal]
  - Disseminated intravascular coagulation [Unknown]

NARRATIVE: CASE EVENT DATE: 2020
